FAERS Safety Report 20053683 (Version 1)
Quarter: 2021Q4

REPORT INFORMATION
  Report Type: Spontaneous
  Country: US (occurrence: None)
  Receive Date: 20211110
  Receipt Date: 20211110
  Transmission Date: 20220304
  Serious: Yes (Hospitalization)
  Sender: FDA-Public Use
  Company Number: US-Unichem Pharmaceuticals (USA) Inc-UCM202111-001016

PATIENT
  Age: 69 Year
  Sex: Female

DRUGS (4)
  1. AMLODIPINE [Suspect]
     Active Substance: AMLODIPINE BESYLATE
     Indication: Overdose
     Dosage: UNKNOWN
  2. APIXABAN [Suspect]
     Active Substance: APIXABAN
     Indication: Overdose
     Dosage: 300 MG
  3. CARVEDILOL [Suspect]
     Active Substance: CARVEDILOL
     Indication: Overdose
     Dosage: UNKNOWN
  4. ATORVASTATIN [Suspect]
     Active Substance: ATORVASTATIN
     Indication: Overdose
     Dosage: UNKNOWN

REACTIONS (3)
  - Subdural haematoma [Recovering/Resolving]
  - Hypotension [Recovering/Resolving]
  - Overdose [Unknown]
